FAERS Safety Report 9687021 (Version 1)
Quarter: 2013Q4

REPORT INFORMATION
  Report Type: Report from Study
  Country: VE (occurrence: VE)
  Receive Date: 20131113
  Receipt Date: 20131113
  Transmission Date: 20140711
  Serious: Yes (Hospitalization, Other)
  Sender: FDA-Public Use
  Company Number: PHHY2013VE127564

PATIENT
  Age: 48 Year
  Sex: Female

DRUGS (4)
  1. ACLASTA [Suspect]
     Indication: OSTEOPOROSIS
     Dosage: 5 MG, ANNUALLY
     Route: 042
     Dates: start: 201204
  2. METHOTREXATE [Concomitant]
     Dosage: UNK UKN, UNK
  3. PREDNISONE [Concomitant]
     Dosage: UNK UKN, UNK
  4. MOTRIN [Concomitant]
     Dosage: UNK UKN, UNK

REACTIONS (3)
  - Musculoskeletal discomfort [Not Recovered/Not Resolved]
  - Hernial eventration [Unknown]
  - Arthralgia [Unknown]
